FAERS Safety Report 23863320 (Version 1)
Quarter: 2024Q2

REPORT INFORMATION
  Report Type: Spontaneous
  Country: CN (occurrence: CN)
  Receive Date: 20240516
  Receipt Date: 20240516
  Transmission Date: 20240716
  Serious: Yes (Hospitalization)
  Sender: FDA-Public Use
  Company Number: CN-BAUSCH-BL-2024-007554

PATIENT
  Age: 7 Decade
  Sex: Female

DRUGS (2)
  1. PENICILLAMINE [Suspect]
     Active Substance: PENICILLAMINE
     Indication: Hepato-lenticular degeneration
     Route: 065
  2. PENICILLAMINE [Suspect]
     Active Substance: PENICILLAMINE
     Dosage: A GRADUAL INCREASE TO 0.25 G THRICE DAILY 1 HOUR BEFORE MEALS FOR THREE MONTHS
     Route: 065

REACTIONS (1)
  - Neurological decompensation [Recovering/Resolving]
